FAERS Safety Report 7358367-0 (Version None)
Quarter: 2011Q1

REPORT INFORMATION
  Report Type: 
  Country: None (occurrence: None)
  Receive Date: 20110317
  Receipt Date: 20110307
  Transmission Date: 20110831
  Serious: Yes (Other)
  Sender: FDA-Public Use
  Company Number: US-ALLERGAN-0801850US

PATIENT
  Age: 45 Year
  Sex: Female

DRUGS (20)
  1. BOTOX COSMETIC [Suspect]
     Dosage: 5 UNITS, SINGLE
     Route: 030
     Dates: start: 20040223, end: 20040223
  2. AMBIEN [Concomitant]
     Dosage: 10 MG, QHS
     Route: 048
  3. BOTOX COSMETIC [Suspect]
     Indication: SKIN WRINKLING
     Dosage: 50 UNITS, SINGLE
     Route: 030
     Dates: start: 20070118, end: 20070118
  4. BOTOX COSMETIC [Suspect]
     Dosage: 20 UNITS, SINGLE
     Route: 030
     Dates: start: 20030710, end: 20030710
  5. BOTOX COSMETIC [Suspect]
     Dosage: 5 UNITS, SINGLE
     Route: 030
     Dates: start: 20060522, end: 20060522
  6. CYMBALTA [Concomitant]
     Indication: DEPRESSION
     Dosage: 30 MG, UNK
     Route: 048
     Dates: start: 20060315
  7. BOTOX COSMETIC [Suspect]
     Dosage: UNK, SINGLE
     Route: 030
     Dates: start: 20020424, end: 20020424
  8. BOTOX COSMETIC [Suspect]
     Dosage: 30 UNITS, SINGLE
     Route: 030
     Dates: start: 20040129, end: 20040129
  9. ADVAIR DISKUS 100/50 [Concomitant]
     Indication: ASTHMA EXERCISE INDUCED
     Dosage: 1 PUFF, BID
     Route: 055
     Dates: start: 20070402
  10. BOTOX COSMETIC [Suspect]
     Dosage: 25 UNITS, SINGLE
     Route: 030
     Dates: start: 20070315, end: 20070315
  11. ZOLOFT [Concomitant]
     Indication: DEPRESSION
     Dosage: 50 MG, QAM
     Route: 048
  12. ALBUTEROL [Concomitant]
     Indication: ASTHMA EXERCISE INDUCED
     Dosage: 1-2 PUFFS, Q4-6H, PRN
     Route: 055
     Dates: start: 20070307
  13. CLARINEX [Concomitant]
     Indication: RHINITIS ALLERGIC
     Dates: start: 20070307
  14. AMBIEN [Concomitant]
     Indication: INSOMNIA
     Dosage: 5 MG, QHS
     Route: 048
     Dates: start: 20060802
  15. BOTOX COSMETIC [Suspect]
     Dosage: 40 UNITS, SINGLE
     Route: 030
     Dates: start: 20060508, end: 20060508
  16. VALIUM [Concomitant]
     Dosage: 10 MG, BID, FOR FLYING
     Route: 048
  17. BOTOX COSMETIC [Suspect]
     Dosage: 30 UNITS, SINGLE
     Route: 030
     Dates: start: 20040524, end: 20040524
  18. TAZORAC [Concomitant]
     Indication: ECZEMA
     Dosage: UNK, QHS
     Route: 061
  19. VALIUM [Concomitant]
     Indication: ANXIETY
     Dosage: 5 MG, Q8HR
     Route: 048
  20. IBUPROFEN [Concomitant]
     Indication: PAIN
     Dosage: 800 MG, Q6HR, PRN
     Route: 048

REACTIONS (3)
  - EYELID PTOSIS [None]
  - VISION BLURRED [None]
  - MYASTHENIA GRAVIS [None]
